FAERS Safety Report 24370204 (Version 1)
Quarter: 2024Q3

REPORT INFORMATION
  Report Type: Report from Study
  Country: US (occurrence: US)
  Receive Date: 20240927
  Receipt Date: 20240927
  Transmission Date: 20241017
  Serious: No
  Sender: ROCHE
  Company Number: US-ROCHE-3565222

PATIENT
  Age: 63 Year
  Sex: Female

DRUGS (6)
  1. LUCENTIS [Suspect]
     Active Substance: RANIBIZUMAB
     Indication: Diabetic retinopathy
     Dosage: AFFECTED EYE
     Route: 065
  2. LUCENTIS [Suspect]
     Active Substance: RANIBIZUMAB
     Indication: Macular oedema
  3. CARVEDILOL [Concomitant]
     Active Substance: CARVEDILOL
  4. TERAZOSIN [Concomitant]
     Active Substance: TERAZOSIN HYDROCHLORIDE
  5. FUROSEMIDE [Concomitant]
     Active Substance: FUROSEMIDE
  6. AMLODIPINE [Concomitant]
     Active Substance: AMLODIPINE BESYLATE

REACTIONS (1)
  - Muscular weakness [Unknown]
